FAERS Safety Report 7951909-3 (Version None)
Quarter: 2011Q4

REPORT INFORMATION
  Report Type: 
  Country: None (occurrence: None)
  Receive Date: 20111130
  Receipt Date: 20111130
  Transmission Date: 20120403
  Serious: Yes (Disabling)
  Sender: FDA-Public Use
  Company Number: None

PATIENT
  Sex: Male
  Weight: 87.0906 kg

DRUGS (1)
  1. PROPECIA [Suspect]
     Indication: ANDROGENETIC ALOPECIA
     Dosage: 1 MG DAILY ORAL
     Route: 048
     Dates: end: 20110301

REACTIONS (9)
  - LIBIDO DECREASED [None]
  - FEELING ABNORMAL [None]
  - ANXIETY [None]
  - ERECTILE DYSFUNCTION [None]
  - SPEECH DISORDER [None]
  - COGNITIVE DISORDER [None]
  - ALOPECIA [None]
  - DISTURBANCE IN ATTENTION [None]
  - PSYCHOMOTOR HYPERACTIVITY [None]
